FAERS Safety Report 19731574 (Version 1)
Quarter: 2021Q3

REPORT INFORMATION
  Report Type: Spontaneous
  Country: US (occurrence: US)
  Receive Date: 20210820
  Receipt Date: 20210820
  Transmission Date: 20211014
  Serious: No
  Sender: FDA-Public Use
  Company Number: None

PATIENT
  Age: 61 Year
  Sex: Female

DRUGS (3)
  1. VERZENIO [Suspect]
     Active Substance: ABEMACICLIB
     Indication: BRAIN NEOPLASM MALIGNANT
     Route: 048
     Dates: end: 20210602
  2. VERZENIO [Suspect]
     Active Substance: ABEMACICLIB
     Indication: NEOPLASM MALIGNANT
     Route: 048
     Dates: end: 20210602
  3. VERZENIO [Suspect]
     Active Substance: ABEMACICLIB
     Indication: BONE CANCER
     Route: 048
     Dates: end: 20210602

REACTIONS (2)
  - Hypersensitivity [None]
  - Rash [None]

NARRATIVE: CASE EVENT DATE: 20210602
